FAERS Safety Report 21103307 (Version 1)
Quarter: 2022Q3

REPORT INFORMATION
  Report Type: Spontaneous
  Country: US (occurrence: US)
  Receive Date: 20220720
  Receipt Date: 20220720
  Transmission Date: 20221026
  Serious: No
  Sender: FDA-Public Use
  Company Number: US-CIPLA LTD.-2022US03478

PATIENT
  Sex: Female

DRUGS (6)
  1. TERBINAFINE [Suspect]
     Active Substance: TERBINAFINE
     Indication: Onychomycosis
     Dosage: 250 MILLIGRAM, BID
     Route: 048
     Dates: start: 20220430, end: 20220523
  2. FLUTICASONE PROPIONATE [Concomitant]
     Active Substance: FLUTICASONE PROPIONATE
     Indication: Sinus disorder
     Dosage: 50 MICROGRAM, QD
     Route: 065
     Dates: start: 20220426, end: 20220523
  3. ALEVE [Concomitant]
     Active Substance: NAPROXEN SODIUM
     Indication: Back injury
     Dosage: UNK, ONCE/TWICE IN A DAY, 10 YEARS
     Route: 065
  4. VITAMIN D3 [Concomitant]
     Active Substance: CHOLECALCIFEROL
     Indication: Vitamin supplementation
     Dosage: UNK, QD, 2000IU 50 MCG, 10 YEARS
     Route: 065
  5. TUMS [Concomitant]
     Active Substance: CALCIUM CARBONATE
     Indication: Mineral supplementation
     Dosage: UNK, QD, 5-10 YEARS
     Route: 065
  6. SULFACETAMIDE SODIUM [Concomitant]
     Active Substance: SULFACETAMIDE SODIUM
     Indication: Product used for unknown indication
     Dosage: UNK, QD, 5-10 YEARS
     Route: 065

REACTIONS (3)
  - Oedema peripheral [Unknown]
  - Urticaria [Not Recovered/Not Resolved]
  - Rash [Not Recovered/Not Resolved]

NARRATIVE: CASE EVENT DATE: 20220523
